FAERS Safety Report 15411834 (Version 1)
Quarter: 2018Q3

REPORT INFORMATION
  Report Type: Spontaneous
  Country: US (occurrence: US)
  Receive Date: 20180921
  Receipt Date: 20180921
  Transmission Date: 20181010
  Serious: No
  Sender: FDA-Public Use
  Company Number: US-RECKITT BENCKISER HEALTHCARE INT LIMITED-RB-87549-2018

PATIENT
  Age: 73 Year
  Sex: Female

DRUGS (2)
  1. MUCINEX FAST?MAX SEVERE CONGESTION AND COUGH [Suspect]
     Active Substance: DEXTROMETHORPHAN HYDROBROMIDE\GUAIFENESIN\PHENYLEPHRINE HYDROCHLORIDE
     Indication: RESPIRATORY TRACT CONGESTION
     Dosage: UNK, AMOUNT USED: 1 DOSE
     Route: 065
     Dates: start: 20180322
  2. MUCINEX [Suspect]
     Active Substance: GUAIFENESIN
     Indication: RESPIRATORY TRACT CONGESTION
     Dosage: UNK, AMOUNT USED: 2 CAPSULES WITHIN LAST 12 HOURS
     Route: 065
     Dates: start: 20180322

REACTIONS (4)
  - Abnormal behaviour [Recovered/Resolved]
  - Confusional state [Recovered/Resolved]
  - Dizziness [Recovered/Resolved]
  - Drug ineffective [Not Recovered/Not Resolved]

NARRATIVE: CASE EVENT DATE: 20180322
